FAERS Safety Report 6359293-6 (Version None)
Quarter: 2009Q3

REPORT INFORMATION
  Report Type: 
  Country: None (occurrence: None)
  Receive Date: 20090917
  Receipt Date: 20090909
  Transmission Date: 20100115
  Serious: Yes (Other)
  Sender: FDA-Public Use
  Company Number: CA-ROCHE-636367

PATIENT
  Age: 27 Year
  Sex: Male

DRUGS (8)
  1. SAQUINAVIR [Suspect]
     Indication: HIV INFECTION
     Dosage: OTHER INDICATION REPORTED AS HEPATITIS C VIRUS INFECTION
     Route: 065
  2. SAQUINAVIR [Suspect]
     Route: 065
  3. NELFINAVIR [Suspect]
     Indication: HIV INFECTION
     Dosage: OTHER INDICATION REPORTED AS HEPATITIS C VIRUS INFECTION
     Route: 065
  4. NELFINAVIR [Suspect]
     Route: 065
  5. ZIDOVUDINE [Suspect]
     Indication: HIV INFECTION
     Dosage: OTHER INDICATION REPORTED AS HEPATITIS C VIRUS INFECTION
     Route: 065
  6. ZIDOVUDINE [Suspect]
     Route: 065
  7. LAMIVUDINE [Suspect]
     Indication: HIV INFECTION
     Dosage: OTHER INDICATION: HEPATITIS C VIRUS INFECTION
     Route: 065
  8. LAMIVUDINE [Suspect]
     Route: 065

REACTIONS (4)
  - ALANINE AMINOTRANSFERASE INCREASED [None]
  - ASPARTATE AMINOTRANSFERASE INCREASED [None]
  - BLOOD BILIRUBIN INCREASED [None]
  - HEPATOTOXICITY [None]
